FAERS Safety Report 6818473-3 (Version None)
Quarter: 2010Q3

REPORT INFORMATION
  Report Type: 
  Country: None (occurrence: None)
  Receive Date: 20100706
  Receipt Date: 20080513
  Transmission Date: 20110219
  Serious: No
  Sender: FDA-Public Use
  Company Number: US-PFIZER INC-2008041520

PATIENT
  Sex: Male
  Weight: 74.84 kg

DRUGS (1)
  1. ZITHROMAX [Suspect]
     Indication: LYMPH NODE PAIN
     Dates: start: 20080101

REACTIONS (8)
  - ABDOMINAL PAIN [None]
  - COLITIS [None]
  - DIARRHOEA [None]
  - DIZZINESS [None]
  - PARAESTHESIA [None]
  - PYREXIA [None]
  - VOMITING [None]
  - WEIGHT INCREASED [None]
